FAERS Safety Report 10975895 (Version 2)
Quarter: 2015Q1

REPORT INFORMATION
  Report Type: Spontaneous
  Country: None (occurrence: None)
  Receive Date: 20150226
  Receipt Date: 20150226
  Transmission Date: 20150721
  Serious: No
  Sender: FDA-Public Use
  Company Number: TPA2009A01882

PATIENT
  Age: 74 Year
  Sex: Male
  Weight: 96.16 kg

DRUGS (3)
  1. COLCHICINE. [Concomitant]
     Active Substance: COLCHICINE
  2. ULORIC [Suspect]
     Active Substance: FEBUXOSTAT
     Indication: GOUT
     Route: 048
     Dates: start: 20090527
  3. PRAMOXINE (PRAMOCAINE HYDROCHLORIDE) [Concomitant]

REACTIONS (2)
  - Urticaria [None]
  - Gout [None]

NARRATIVE: CASE EVENT DATE: 2009
